FAERS Safety Report 23257677 (Version 2)
Quarter: 2023Q4

REPORT INFORMATION
  Report Type: Spontaneous
  Country: AR (occurrence: None)
  Receive Date: 20231204
  Receipt Date: 20231228
  Transmission Date: 20240109
  Serious: Yes (Other)
  Sender: FDA-Public Use
  Company Number: AR-ROCHE-3466045

PATIENT
  Age: 65 Year
  Sex: Male

DRUGS (12)
  1. OBINUTUZUMAB [Suspect]
     Active Substance: OBINUTUZUMAB
     Indication: Follicular lymphoma
     Route: 042
     Dates: start: 201909
  2. RITUXIMAB [Suspect]
     Active Substance: RITUXIMAB
     Indication: Follicular lymphoma
     Dosage: DOSE AND FREQUENCY WERE NOT REPORTED
     Route: 065
  3. BENDAMUSTINE [Concomitant]
     Active Substance: BENDAMUSTINE
     Indication: Follicular lymphoma
  4. CYCLOPHOSPHAMIDE [Concomitant]
     Active Substance: CYCLOPHOSPHAMIDE
     Indication: Follicular lymphoma
     Dosage: DOSE AND FREQUENCY WERE NOT REPORTED
     Dates: start: 201909
  5. DOXORUBICIN [Concomitant]
     Active Substance: DOXORUBICIN
     Indication: Follicular lymphoma
     Dosage: DOSE AND FREQUENCY WERE NOT REPORTED
     Dates: start: 201909
  6. VINCRISTINE [Concomitant]
     Active Substance: VINCRISTINE
     Indication: Follicular lymphoma
     Dosage: DOSE AND FREQUENCY WERE NOT REPORTED
     Dates: start: 201909
  7. PREDNISONE [Concomitant]
     Active Substance: PREDNISONE
     Indication: Follicular lymphoma
     Dosage: DOSE AND FREQUENCY WERE NOT REPORTED
     Dates: start: 201909
  8. ETOPOSIDE [Concomitant]
     Active Substance: ETOPOSIDE
     Indication: Follicular lymphoma
  9. METHYLPREDNISOLONE [Concomitant]
     Active Substance: METHYLPREDNISOLONE
     Indication: Follicular lymphoma
  10. CYTARABINE [Concomitant]
     Active Substance: CYTARABINE
     Indication: Follicular lymphoma
  11. CISPLATIN [Concomitant]
     Active Substance: CISPLATIN
     Indication: Follicular lymphoma
  12. LENALIDOMIDE [Concomitant]
     Active Substance: LENALIDOMIDE
     Indication: Follicular lymphoma

REACTIONS (20)
  - Neutropenic infection [Unknown]
  - Metastases to lymph nodes [Unknown]
  - Bone marrow infiltration [Unknown]
  - Pneumonia [Unknown]
  - Oedema peripheral [Unknown]
  - Oedema peripheral [Unknown]
  - Leukaemia [Unknown]
  - Lymphadenopathy [Unknown]
  - Lymphadenopathy [Unknown]
  - Splenomegaly [Unknown]
  - Therapy partial responder [Unknown]
  - Splenomegaly [Unknown]
  - Rash [Unknown]
  - Diarrhoea [Unknown]
  - Arthralgia [Unknown]
  - Drug intolerance [Unknown]
  - Infusion related reaction [Unknown]
  - Oedema peripheral [Unknown]
  - Mental impairment [Unknown]
  - Drug intolerance [Unknown]

NARRATIVE: CASE EVENT DATE: 20201001
